FAERS Safety Report 19096017 (Version 1)
Quarter: 2021Q2

REPORT INFORMATION
  Report Type: Spontaneous
  Country: US (occurrence: US)
  Receive Date: 20210406
  Receipt Date: 20210406
  Transmission Date: 20210717
  Serious: No
  Sender: FDA-Public Use
  Company Number: US-BIOVITRUM-2021US3241

PATIENT
  Sex: Male
  Weight: 10.79 kg

DRUGS (5)
  1. SYNAGIS [Suspect]
     Active Substance: PALIVIZUMAB
     Indication: BRONCHOPULMONARY DYSPLASIA
  2. CHILDRENS MULTIVITAMIN TAB CHEW [Concomitant]
  3. CHILDRENS TYLENOL [Concomitant]
     Active Substance: ACETAMINOPHEN
  4. CALCIUM CARBONATE. [Concomitant]
     Active Substance: CALCIUM CARBONATE
  5. SYNAGIS [Suspect]
     Active Substance: PALIVIZUMAB
     Indication: PREMATURE BABY
     Route: 030

REACTIONS (5)
  - Illness [Unknown]
  - Cough [Unknown]
  - Rhinorrhoea [Unknown]
  - Fatigue [Unknown]
  - Dyspnoea [Unknown]
